FAERS Safety Report 15197008 (Version 2)
Quarter: 2018Q3

REPORT INFORMATION
  Report Type: Spontaneous
  Country: JP (occurrence: JP)
  Receive Date: 20180725
  Receipt Date: 20180829
  Transmission Date: 20181010
  Serious: Yes (Death)
  Sender: FDA-Public Use
  Company Number: JP-JNJFOC-20180726713

PATIENT
  Age: 58 Year
  Sex: Female

DRUGS (9)
  1. REMICADE [Suspect]
     Active Substance: INFLIXIMAB
     Indication: INTERSTITIAL LUNG DISEASE
     Route: 042
     Dates: start: 20180223
  2. REMICADE [Suspect]
     Active Substance: INFLIXIMAB
     Indication: PNEUMONIA
     Route: 042
     Dates: start: 20180223
  3. REMICADE [Suspect]
     Active Substance: INFLIXIMAB
     Indication: PNEUMONIA
     Route: 042
     Dates: start: 20180605, end: 20180605
  4. REMICADE [Suspect]
     Active Substance: INFLIXIMAB
     Indication: PNEUMONIA
     Route: 042
     Dates: start: 20180418
  5. REMICADE [Suspect]
     Active Substance: INFLIXIMAB
     Indication: INTERSTITIAL LUNG DISEASE
     Route: 042
     Dates: start: 20180605, end: 20180605
  6. REMICADE [Suspect]
     Active Substance: INFLIXIMAB
     Indication: INTERSTITIAL LUNG DISEASE
     Route: 042
     Dates: start: 20180418
  7. REMICADE [Suspect]
     Active Substance: INFLIXIMAB
     Indication: INTERSTITIAL LUNG DISEASE
     Route: 042
     Dates: start: 20180518
  8. REMICADE [Suspect]
     Active Substance: INFLIXIMAB
     Indication: PNEUMONIA
     Route: 042
     Dates: start: 20180518
  9. OPDIVO [Suspect]
     Active Substance: NIVOLUMAB
     Indication: PRODUCT USED FOR UNKNOWN INDICATION
     Route: 065

REACTIONS (3)
  - Interstitial lung disease [Fatal]
  - Product use in unapproved indication [Unknown]
  - Off label use [Unknown]
